FAERS Safety Report 25084220 (Version 1)
Quarter: 2025Q1

REPORT INFORMATION
  Report Type: Spontaneous
  Country: US (occurrence: US)
  Receive Date: 20250317
  Receipt Date: 20250317
  Transmission Date: 20250409
  Serious: Yes (Other)
  Sender: Unknown Manufacturer
  Company Number: US-KOANAAP-SML-US-2025-00161

PATIENT
  Age: 4 Decade

DRUGS (9)
  1. IRINOTECAN [Suspect]
     Active Substance: IRINOTECAN
     Indication: Metastatic gastric cancer
     Dates: start: 202008, end: 202012
  2. DOCETAXEL [Suspect]
     Active Substance: DOCETAXEL
     Indication: Metastatic gastric cancer
     Dates: start: 202102, end: 202105
  3. FLUOROURACIL [Suspect]
     Active Substance: FLUOROURACIL
     Indication: Metastatic gastric cancer
     Dates: start: 202001, end: 202007
  4. FLUOROURACIL [Suspect]
     Active Substance: FLUOROURACIL
     Dates: start: 202008, end: 202012
  5. FLUOROURACIL [Suspect]
     Active Substance: FLUOROURACIL
     Dates: start: 202102, end: 202105
  6. LEUCOVORIN [Suspect]
     Active Substance: LEUCOVORIN\LEUCOVORIN CALCIUM
     Indication: Metastatic gastric cancer
     Dates: start: 202001, end: 202007
  7. LEUCOVORIN [Suspect]
     Active Substance: LEUCOVORIN\LEUCOVORIN CALCIUM
     Dates: start: 202007, end: 202012
  8. PACLITAXEL [Suspect]
     Active Substance: PACLITAXEL
     Indication: Metastatic gastric cancer
     Dates: start: 202012, end: 202101
  9. CISPLATIN [Suspect]
     Active Substance: CISPLATIN
     Indication: Metastatic gastric cancer
     Dates: start: 202102, end: 202105

REACTIONS (2)
  - Drug ineffective [Unknown]
  - Disease progression [Unknown]
